FAERS Safety Report 6655428-6 (Version None)
Quarter: 2010Q1

REPORT INFORMATION
  Report Type: 
  Country: None (occurrence: None)
  Receive Date: 20100329
  Receipt Date: 20100225
  Transmission Date: 20100710
  Serious: No
  Sender: FDA-Public Use
  Company Number: US-BAYER-201012637BCC

PATIENT
  Age: 76 Year
  Sex: Male
  Weight: 96 kg

DRUGS (5)
  1. ALEVE (CAPLET) [Suspect]
     Indication: ARTHRALGIA
     Dosage: TOTAL DAILY DOSE: 660 MG  UNIT DOSE: 220 MG
     Route: 048
     Dates: start: 19980101
  2. ALEVE (CAPLET) [Suspect]
     Dosage: BOTTLE COUNT 20S
     Route: 048
  3. ALEVE (CAPLET) [Suspect]
     Dosage: UNIT DOSE: 220 MG
     Route: 048
  4. ALEVE (CAPLET) [Suspect]
     Indication: ARTHRALGIA
     Dosage: BOTTLE COUNT 24S
     Route: 048
  5. ALEVE [Suspect]
     Indication: ARTHRALGIA
     Route: 048

REACTIONS (3)
  - BLOOD PRESSURE INCREASED [None]
  - HEART RATE INCREASED [None]
  - POLLAKIURIA [None]
